FAERS Safety Report 21293286 (Version 1)
Quarter: 2022Q3

REPORT INFORMATION
  Report Type: Report from Study
  Country: KR (occurrence: KR)
  Receive Date: 20220905
  Receipt Date: 20220905
  Transmission Date: 20221027
  Serious: Yes (Hospitalization)
  Sender: FDA-Public Use
  Company Number: KR-HBP-2021KR024006

PATIENT

DRUGS (8)
  1. AKYNZEO (NETUPITANT\PALONOSETRON) [Suspect]
     Active Substance: NETUPITANT\PALONOSETRON
     Indication: Prophylaxis of nausea and vomiting
     Dosage: 1 DOSAGE FORM, QD
     Route: 048
     Dates: start: 20210504, end: 20210504
  2. CISPLATIN [Suspect]
     Active Substance: CISPLATIN
     Indication: Chemotherapy
     Dosage: 20 MILLIGRAM, QD
     Route: 042
     Dates: start: 20210504
  3. CISPLATIN [Suspect]
     Active Substance: CISPLATIN
     Indication: Chemotherapy
     Dosage: 100 MILLIGRAM, QD
     Route: 042
     Dates: start: 20210504, end: 20210504
  4. ALIMTA [Suspect]
     Active Substance: PEMETREXED DISODIUM
     Indication: Chemotherapy
     Dosage: 850 MILLIGRAM, QD
     Route: 042
     Dates: start: 20210504, end: 20210504
  5. KEYTRUDA [Concomitant]
     Active Substance: PEMBROLIZUMAB
     Dosage: 200 MILLIGRAM, QD
     Route: 042
     Dates: start: 20210504
  6. TYLENOL 8HR [Concomitant]
     Active Substance: ACETAMINOPHEN
     Dosage: 650 MILLIGRAM, QD
     Route: 048
     Dates: start: 20210504
  7. MANNITOL [Concomitant]
     Active Substance: MANNITOL
     Dosage: 70 MILLILITER, QD
     Route: 042
     Dates: start: 20210504
  8. PENIRAMIN [Concomitant]
     Dosage: 4 MILLIGRAM, QD
     Route: 042
     Dates: start: 20210504

REACTIONS (1)
  - Vomiting [Recovered/Resolved]

NARRATIVE: CASE EVENT DATE: 20210505
